FAERS Safety Report 16328379 (Version 1)
Quarter: 2019Q2

REPORT INFORMATION
  Report Type: Spontaneous
  Country: DE (occurrence: DE)
  Receive Date: 20190518
  Receipt Date: 20190518
  Transmission Date: 20190711
  Serious: Yes (Life-Threatening, Hospitalization, Other)
  Sender: FDA-Public Use
  Company Number: DE-AUROBINDO-AUR-APL-2019-026508

PATIENT

DRUGS (4)
  1. VALDOXAN [Suspect]
     Active Substance: AGOMELATINE
     Indication: PRODUCT USED FOR UNKNOWN INDICATION
     Dosage: 2500 MILLIGRAM, ONCE A DAY,2500 MG, SINGLE
     Route: 048
     Dates: start: 20180317, end: 20180317
  2. PANTOPRAZOLE [Concomitant]
     Active Substance: PANTOPRAZOLE
     Indication: PRODUCT USED FOR UNKNOWN INDICATION
     Dosage: 40 MILLIGRAM, ONCE A DAY,40 MG, QD
     Route: 065
  3. VENLAFAXINE [Suspect]
     Active Substance: VENLAFAXINE HYDROCHLORIDE
     Indication: PRODUCT USED FOR UNKNOWN INDICATION
     Dosage: 225 MILLIGRAM, ONCE A DAY,225MG, QD
     Route: 048
     Dates: start: 2017, end: 20180316
  4. VENLAFAXINE [Suspect]
     Active Substance: VENLAFAXINE HYDROCHLORIDE
     Dosage: 900 MILLIGRAM, ONCE A DAY,900 MG, SINGLE
     Route: 048
     Dates: start: 20180317, end: 20180317

REACTIONS (4)
  - Intentional overdose [Recovered/Resolved]
  - Hemiparesis [Unknown]
  - Haemorrhage intracranial [Unknown]
  - Suicide attempt [Recovered/Resolved]

NARRATIVE: CASE EVENT DATE: 2018
